FAERS Safety Report 9771744 (Version 1)
Quarter: 2013Q4

REPORT INFORMATION
  Report Type: Spontaneous
  Country: ES (occurrence: ES)
  Receive Date: 20131219
  Receipt Date: 20131219
  Transmission Date: 20140711
  Serious: Yes (Hospitalization, Other)
  Sender: FDA-Public Use
  Company Number: ES-009507513-1312ESP005679

PATIENT
  Sex: Male
  Weight: 86 kg

DRUGS (1)
  1. VICTRELIS [Suspect]
     Indication: HEPATITIS C
     Dosage: 800 MG/8 HORAS
     Route: 048
     Dates: start: 20130527, end: 20131129

REACTIONS (1)
  - Hepatic failure [Recovering/Resolving]
